APPROVED DRUG PRODUCT: FLUTICASONE PROPIONATE AND SALMETEROL XINAFOATE
Active Ingredient: FLUTICASONE PROPIONATE; SALMETEROL XINAFOATE
Strength: 0.1MG/INH;EQ 0.05MG BASE/INH
Dosage Form/Route: POWDER;INHALATION
Application: A213948 | Product #001 | TE Code: AB
Applicant: TEVA PHARMACEUTICALS USA INC
Approved: Dec 13, 2021 | RLD: No | RS: No | Type: RX